FAERS Safety Report 9373932 (Version 2)
Quarter: 2013Q3

REPORT INFORMATION
  Report Type: Report from Study
  Country: FR (occurrence: FR)
  Receive Date: 20130628
  Receipt Date: 20130717
  Transmission Date: 20140515
  Serious: Yes (Death, Hospitalization)
  Sender: FDA-Public Use
  Company Number: FR-ROCHE-1018892

PATIENT
  Sex: Male

DRUGS (12)
  1. RITUXIMAB [Suspect]
     Indication: LYMPHOMA
     Route: 042
     Dates: start: 20070620
  2. RITUXIMAB [Suspect]
     Route: 042
     Dates: start: 20070627
  3. RITUXIMAB [Suspect]
     Route: 042
     Dates: start: 20070704
  4. RITUXIMAB [Suspect]
     Route: 042
     Dates: start: 20070711
  5. RITUXIMAB [Suspect]
     Route: 042
     Dates: start: 20070905
  6. RITUXIMAB [Suspect]
     Route: 042
     Dates: start: 20071102
  7. RITUXIMAB [Suspect]
     Route: 042
     Dates: start: 20080104
  8. RITUXIMAB [Suspect]
     Route: 042
     Dates: start: 20080229
  9. RITUXIMAB [Suspect]
     Route: 042
     Dates: start: 20080423
  10. RITUXIMAB [Suspect]
     Route: 042
     Dates: start: 20080618
  11. RITUXIMAB [Suspect]
     Route: 042
     Dates: start: 20080813
  12. RITUXIMAB [Suspect]
     Route: 042
     Dates: start: 20080813

REACTIONS (4)
  - Myocardial infarction [Fatal]
  - Skin cancer [Recovered/Resolved]
  - Neoplasm skin [Unknown]
  - Neoplasm [Unknown]
